FAERS Safety Report 24847803 (Version 3)
Quarter: 2025Q2

REPORT INFORMATION
  Report Type: Report from Study
  Country: US (occurrence: US)
  Receive Date: 20250116
  Receipt Date: 20250611
  Transmission Date: 20250717
  Serious: Yes (Other)
  Sender: JAZZ
  Company Number: US-JAZZ PHARMACEUTICALS-2025-US-000789

PATIENT
  Age: 21 Year
  Sex: Female
  Weight: 72.562 kg

DRUGS (2)
  1. EPIDIOLEX [Suspect]
     Active Substance: CANNABIDIOL
     Indication: Lennox-Gastaut syndrome
     Dosage: 17.08 MILLIGRAM/KILOGRAM/DAY, BID (DOSE 6.2ML / WEIGHT 160LBS =17.08MG/KG/DAY)
     Dates: start: 20240411
  2. EPIDIOLEX [Suspect]
     Active Substance: CANNABIDIOL
     Dosage: 16.57 MILLIGRAM/KILOGRAM, BID
     Dates: start: 20240411

REACTIONS (9)
  - Generalised tonic-clonic seizure [Recovered/Resolved]
  - Fall [Recovered/Resolved]
  - Fracture [Recovered/Resolved]
  - Fall [Recovered/Resolved]
  - Fracture [Recovered/Resolved]
  - Ankle operation [Recovered/Resolved]
  - Anaemia [Recovered/Resolved]
  - Hepatic lesion [Not Recovered/Not Resolved]
  - Anaemia [Not Recovered/Not Resolved]

NARRATIVE: CASE EVENT DATE: 20240610
